FAERS Safety Report 11135457 (Version 3)
Quarter: 2015Q2

REPORT INFORMATION
  Report Type: Spontaneous
  Country: US (occurrence: None)
  Receive Date: 20150521
  Receipt Date: 20150622
  Transmission Date: 20150821
  Serious: Yes (Hospitalization, Other)
  Sender: FDA-Public Use
  Company Number: ADR-2015-00918

PATIENT
  Age: 60 Year
  Sex: Female

DRUGS (35)
  1. SODIUM CHLORIDE 0.65% [Suspect]
     Active Substance: SODIUM CHLORIDE
     Indication: PULMONARY CONGESTION
     Dosage: 45 1 SPRAY, NASAL, Q4HR, PRN
     Route: 045
  2. NACL 0.9% [Suspect]
     Active Substance: SODIUM CHLORIDE
     Dosage: STOP:06/0915 15:44:00
     Route: 042
     Dates: end: 20150609
  3. ASPIRIN. [Suspect]
     Active Substance: ASPIRIN
  4. NALOXONE 0.4 MG/ML [Suspect]
     Active Substance: NALOXONE
     Indication: RESPIRATORY DEPRESSION
     Dosage: 0.4 MG/ML 1 ML INJ: 0.2 MG, IV PUSH, Q2MIN, PRN
     Route: 042
  5. ONDANSETRON 2 MG/ML [Suspect]
     Active Substance: ONDANSETRON
     Indication: VOMITING
     Dosage: 2 MG/ML INJ 2ML: 4 MG, IV PUSH, Q4HR, PRN
     Route: 042
  6. COUMADIN [Suspect]
     Active Substance: WARFARIN SODIUM
  7. METOPROLOL 25 MG [Suspect]
     Active Substance: METOPROLOL
  8. CEFEPIME [Suspect]
     Active Substance: CEFEPIME\CEFEPIME HYDROCHLORIDE
     Dosage: 2,000 MG, 100 ML, 33.33 ML/HR
     Route: 042
  9. LABETALOL [Suspect]
     Active Substance: LABETALOL\LABETALOL HYDROCHLORIDE
     Indication: HYPERTENSION
     Dosage: 5 MG/ML 20 ML INJ: 5 MG IV, Q15MIN, PRN
     Route: 042
  10. HEPARIN SODIUM + DSW FOR PREMI [Suspect]
     Active Substance: HEPARIN SODIUM
     Indication: PRODUCT USED FOR UNKNOWN INDICATION
     Dosage: STOP:06/11/15 11:47:00
     Route: 042
     Dates: end: 20150611
  11. LIPITOR [Suspect]
     Active Substance: ATORVASTATIN CALCIUM
  12. TRAMADOL [Suspect]
     Active Substance: TRAMADOL
  13. BISACODYL 10 MG SUPP [Suspect]
     Active Substance: BISACODYL
     Indication: CONSTIPATION
     Dosage: 10 MG SUPP: 10 MG,PR
  14. HYDRALAZINE [Suspect]
     Active Substance: HYDRALAZINE HYDROCHLORIDE
     Indication: HYPERTENSION
     Dosage: 1 ML INJ; 10 MG, IV, Q30MIN, PRN
     Route: 042
  15. MAGNESIUM SULF/SW 2 GM [Suspect]
     Active Substance: MAGNESIUM SULFATE
     Indication: HYPOMAGNESAEMIA
     Dosage: 2 GM, 50 ML, 25 ML/HR, IV, PER PARAMETER
     Route: 042
  16. OXYCODONE [Suspect]
     Active Substance: OXYCODONE
     Indication: PAIN
     Dosage: Q4HR, PRN
     Route: 048
  17. BUPROPION ER [Suspect]
     Active Substance: BUPROPION
  18. DOCUSATE/SENNA (50/8.6) MG TAB [Suspect]
     Active Substance: DOCUSATE SODIUM\SENNA LEAF
     Dosage: (50/8.6) MG TAB 2 TAB
     Route: 048
  19. ARTIFICIAL TEARS NOS [Suspect]
     Active Substance: GLYCERIN\HYPROMELLOSE 2910 (15 MPA.S)\PETROLATUM OR POLYVINYL ALCOHOL\POLYETHYLENE GLYCOL 400 OR MINERAL OIL\POVIDONE OR PROPYLENE GLYCOL
     Indication: DRY EYE
     Dosage: 15 4 DROP, EYE, BOTH, Q2HR?
     Route: 047
  20. CLONIDINE 0.1MG TAB [Suspect]
     Active Substance: CLONIDINE
     Indication: HYPERTENSION
     Dosage: 0.1 MG, PO, Q6H, PRN
     Route: 048
  21. LACTULOSE 10 GM/15ML, 30 ML SY [Suspect]
     Active Substance: LACTULOSE
     Indication: CONSTIPATION
     Dosage: 10 GM/15 ML 30 ML SY 20 GM, FEED TUBE, PRN
     Route: 048
  22. SERTRALINE [Suspect]
     Active Substance: SERTRALINE HYDROCHLORIDE
  23. BACLOFEN INTRATHECAL 500 MCG/ML [Suspect]
     Active Substance: BACLOFEN
     Indication: MUSCLE SPASTICITY
     Dates: start: 2008
  24. BUPIVACAINE INTRATHECAL 2.5 MG/ML [Suspect]
     Active Substance: BUPIVACAINE
     Indication: MUSCLE SPASTICITY
     Dates: start: 2008
  25. ALBUTEROL 0.083% UNIT DOSE [Suspect]
     Active Substance: ALBUTEROL
     Indication: WHEEZING
     Dosage: 2.5 MG/3 ML, 2.5 MG, 3 ML, NEB-INHALATION, Q4HR PRN
     Route: 055
  26. ONDANSETRON 2 MG/ML [Suspect]
     Active Substance: ONDANSETRON
     Indication: NAUSEA
     Dosage: 2 MG/ML INJ 2ML: 4 MG, IV PUSH, Q4HR, PRN
     Route: 042
  27. POLYETHYLENE GLYCOL 3350 17 GM [Suspect]
     Active Substance: POLYETHYLENE GLYCOL 3350
     Indication: CONSTIPATION
     Dosage: PRN
     Route: 048
  28. ACETAMINOPHEN (160MG/5ML) 20.3 [Suspect]
     Active Substance: ACETAMINOPHEN
     Indication: PYREXIA
     Dosage: (160NMG/5ML) 20.3 650 MG, FEED TUBE, Q4H, PRN
     Route: 048
  29. ALBUTEROL 0.083% UNIT DOSE [Suspect]
     Active Substance: ALBUTEROL
     Indication: DYSPNOEA
     Dosage: 2.5 MG/3 ML, 2.5 MG, 3 ML, NEB-INHALATION, Q4HR PRN
     Route: 055
  30. FAMOTIDINE 10MG/ML 2 ML I NJ [Suspect]
     Active Substance: FAMOTIDINE
     Dosage: 10 MG/ML 2 ML INJ: 20 MG, IV PUSH
     Route: 042
  31. MORPHINE [Suspect]
     Active Substance: MORPHINE
     Indication: PAIN
     Dosage: 2-4 MG, IV PUSH, Q1HR, PRN
     Route: 042
  32. MORPHINE [Suspect]
     Active Substance: MORPHINE
     Dosage: 2-4 MG, IV PUSH, Q1HR, PRN
     Route: 042
  33. POTASSIUM CHLORIDE. [Suspect]
     Active Substance: POTASSIUM CHLORIDE
     Indication: HYPOKALAEMIA
     Dosage: 20 - 40 MEQ, PER PARAMETER, PRN
     Route: 048
  34. MAGNESIUM SULFATE 50% NACL [Suspect]
     Active Substance: MAGNESIUM SULFATE
     Dosage: 50% + NACL 0 3 GM, 6 ML, 50 ML/HR, IV, PER PARAMETER, PRN
     Route: 042
  35. POTASSIUM CL [Suspect]
     Active Substance: POTASSIUM CHLORIDE
     Indication: HYPOKALAEMIA
     Dosage: SW PREMIX; 10 MEQ, 100 ML, 100 ML/HR, IV, PER PARAMETER, PRN

REACTIONS (15)
  - Loss of consciousness [None]
  - Blood potassium decreased [None]
  - Accidental overdose [None]
  - Overdose [None]
  - Confusional state [None]
  - Sedation [None]
  - Haematocrit decreased [None]
  - Device infusion issue [None]
  - Fatigue [None]
  - Laboratory test abnormal [None]
  - Mental status changes [None]
  - Withdrawal syndrome [None]
  - Blood glucose increased [None]
  - Unresponsive to stimuli [None]
  - Haemoglobin decreased [None]

NARRATIVE: CASE EVENT DATE: 20150501
